FAERS Safety Report 9056209 (Version 1)
Quarter: 2013Q1

REPORT INFORMATION
  Report Type: Spontaneous
  Country: JP (occurrence: JP)
  Receive Date: 20130205
  Receipt Date: 20130205
  Transmission Date: 20140127
  Serious: Yes (Other)
  Sender: FDA-Public Use
  Company Number: JP-ABBOTT-12P-087-0905459-00

PATIENT
  Age: 84 Year
  Sex: Male

DRUGS (2)
  1. LEUPLIN [Suspect]
     Indication: PROSTATE CANCER
     Route: 058
  2. ANTITHROMBOTIC AGENT [Concomitant]
     Indication: PRODUCT USED FOR UNKNOWN INDICATION

REACTIONS (1)
  - Granuloma [Recovering/Resolving]
